FAERS Safety Report 9291470 (Version 1)
Quarter: 2013Q2

REPORT INFORMATION
  Report Type: Spontaneous
  Country: US (occurrence: US)
  Receive Date: 20130515
  Receipt Date: 20130515
  Transmission Date: 20140414
  Serious: No
  Sender: FDA-Public Use
  Company Number: US-BAUSCH-BL-2013-000674

PATIENT
  Age: 72 Year
  Sex: Female

DRUGS (4)
  1. BROMDAY 0.09% [Suspect]
     Indication: CATARACT OPERATION
     Route: 047
     Dates: start: 20120102, end: 20120115
  2. VIGAMOX [Suspect]
     Indication: CATARACT OPERATION
     Route: 047
     Dates: start: 20120102, end: 20120115
  3. PRED FORTE [Suspect]
     Indication: CATARACT OPERATION
     Route: 047
     Dates: start: 20120102, end: 201202
  4. AZASITE [Suspect]
     Indication: CATARACT OPERATION
     Route: 047
     Dates: start: 20120102, end: 20120108

REACTIONS (1)
  - Headache [Not Recovered/Not Resolved]
